FAERS Safety Report 12613969 (Version 4)
Quarter: 2016Q4

REPORT INFORMATION
  Report Type: Spontaneous
  Country: US (occurrence: US)
  Receive Date: 20160802
  Receipt Date: 20161005
  Transmission Date: 20170207
  Serious: No
  Sender: FDA-Public Use
  Company Number: US-PFIZER INC-2016364931

PATIENT
  Age: 56 Year
  Sex: Male

DRUGS (29)
  1. LYRICA [Suspect]
     Active Substance: PREGABALIN
     Indication: PARAESTHESIA
     Dosage: 100 MG, AS NEEDED (Q 8 HRS PRN)
     Route: 048
     Dates: start: 20110819
  2. CYMBALTA [Concomitant]
     Active Substance: DULOXETINE HYDROCHLORIDE
     Indication: PAIN
  3. METFORMIN HCL [Concomitant]
     Active Substance: METFORMIN HYDROCHLORIDE
     Indication: TYPE 2 DIABETES MELLITUS
     Dosage: 1000 MG, DAILY
     Route: 048
     Dates: start: 20150929
  4. VITAMIN E NATURAL [Concomitant]
     Dosage: 400 IU, DAILY
     Route: 048
  5. PROTOPIC [Concomitant]
     Active Substance: TACROLIMUS
     Dosage: UNK, 2X/DAY
  6. FML LIQUIFILM [Concomitant]
     Dosage: UNK, AS NEEDED
     Route: 047
  7. METFORMIN HCL [Concomitant]
     Active Substance: METFORMIN HYDROCHLORIDE
     Dosage: 1000 MG, 2X/DAY
     Dates: start: 20160531
  8. CLOBETASOL PROPIONATE. [Concomitant]
     Active Substance: CLOBETASOL PROPIONATE
     Dosage: UNK, DAILY
  9. PSEUDOEPHEDRINE HYDROCHLORIDE. [Concomitant]
     Active Substance: PSEUDOEPHEDRINE HYDROCHLORIDE
     Dosage: 60 MG, AS NEEDED (Q6 HOUR )
     Route: 048
  10. STELARA [Concomitant]
     Active Substance: USTEKINUMAB
     Dosage: UNK
     Route: 058
  11. TESTIM [Concomitant]
     Active Substance: TESTOSTERONE
  12. CYMBALTA [Concomitant]
     Active Substance: DULOXETINE HYDROCHLORIDE
     Indication: PARAESTHESIA
     Dosage: 60 MG, 2X/DAY
     Route: 048
     Dates: start: 20151109
  13. LISINOPRIL. [Concomitant]
     Active Substance: LISINOPRIL
     Dosage: 10 MG, DAILY
     Route: 048
     Dates: start: 20150908
  14. COMBIVENT RESPIMAT [Concomitant]
     Active Substance: ALBUTEROL SULFATE\IPRATROPIUM BROMIDE
     Dosage: IPRATROPIUM BROMIDE:20; SALBUTAMOL SULFATE: 100 MCG/ACT; (INHALE 2 PUFFS)
     Route: 048
     Dates: start: 20150928
  15. VITAMIN B12 [Concomitant]
     Active Substance: CYANOCOBALAMIN
     Dosage: 0.5 DF, DAILY (1/2 TABLET)
     Route: 048
  16. VITAMIN C PLUS [Concomitant]
     Dosage: 1000 MG, DAILY
     Route: 048
  17. CALCIUM CARBONATE. [Concomitant]
     Active Substance: CALCIUM CARBONATE
     Dosage: 1500 MG, DAILY
     Route: 048
  18. METRONIDAZOLE. [Concomitant]
     Active Substance: METRONIDAZOLE
     Dosage: UNK, AS NEEDED
  19. FISH OIL [Concomitant]
     Active Substance: FISH OIL
     Dosage: 1200 MG, DAILY
     Route: 048
  20. LYRICA [Suspect]
     Active Substance: PREGABALIN
     Indication: PAIN
  21. LYRICA [Suspect]
     Active Substance: PREGABALIN
     Indication: DIABETIC NEUROPATHY
  22. HYDROCORTISONE BUTYRATE. [Concomitant]
     Active Substance: HYDROCORTISONE BUTYRATE
     Dosage: UNK, AS NEEDED
  23. CENTRUM SILVER [Concomitant]
     Active Substance: MINERALS\VITAMINS
     Dosage: 1 DF, DAILY
     Route: 048
  24. VENTOLIN HFA [Concomitant]
     Active Substance: ALBUTEROL SULFATE
     Dosage: UNK, AS NEEDED (2 (TWO) INHALATION UP TO Q4 HOUR)
     Dates: start: 20160414
  25. CHERATUSSIN AC [Concomitant]
     Active Substance: CODEINE PHOSPHATE\GUAIFENESIN
     Dosage: CODEINE PHOSPHATE: 100 MG/5 ML; GUAIFENESIN: 10 MG/5 ML, EVERY 6 HOURS
     Dates: start: 20160531
  26. LYRICA [Suspect]
     Active Substance: PREGABALIN
     Indication: NEUROPATHY PERIPHERAL
     Dosage: 100 MG, 3X/DAY (EVERY EIGHT HOUR)
     Route: 048
  27. VITAMIN D [Concomitant]
     Active Substance: CHOLECALCIFEROL
     Dosage: 2000 IU, DAILY
     Dates: start: 20101227
  28. ATORVASTATIN CALCIUM. [Concomitant]
     Active Substance: ATORVASTATIN CALCIUM
     Dosage: 20 MG, DAILY
     Route: 048
     Dates: start: 20150918
  29. ZINC GLUCONATE [Concomitant]
     Active Substance: ZINC GLUCONATE
     Dosage: 50 MG, DAILY
     Route: 048

REACTIONS (12)
  - Upper respiratory tract infection [Unknown]
  - Lacrimation increased [Unknown]
  - Visual impairment [Unknown]
  - Pain in extremity [Unknown]
  - Hypoaesthesia [Unknown]
  - Rash [Unknown]
  - Glycosylated haemoglobin increased [Unknown]
  - Drug effect incomplete [Unknown]
  - Neuralgia [Unknown]
  - Gait disturbance [Unknown]
  - Blood glucose increased [Unknown]
  - Condition aggravated [Unknown]
